FAERS Safety Report 8588667-8 (Version None)
Quarter: 2012Q3

REPORT INFORMATION
  Report Type: 
  Country: None (occurrence: None)
  Receive Date: 20120813
  Receipt Date: 20120801
  Transmission Date: 20120928
  Serious: Yes (Hospitalization)
  Sender: FDA-Public Use
  Company Number: US-BAYER-2012-079032

PATIENT
  Age: 50 Year
  Sex: Female
  Weight: 117.46 kg

DRUGS (4)
  1. YASMIN [Suspect]
     Indication: MENOPAUSAL SYMPTOMS
     Dosage: UNK
     Dates: start: 20040716, end: 20110417
  2. ACIPHEX [Concomitant]
     Dosage: UNK
     Dates: start: 20040503, end: 20110606
  3. ZYRTEC [Concomitant]
     Dosage: UNK
     Dates: start: 20040423, end: 20110417
  4. SARAFEM [Concomitant]
     Dosage: UNK
     Dates: start: 20040614, end: 20110605

REACTIONS (2)
  - DEEP VEIN THROMBOSIS [None]
  - PULMONARY EMBOLISM [None]
